FAERS Safety Report 5615086-6 (Version None)
Quarter: 2008Q1

REPORT INFORMATION
  Report Type: 
  Country: None (occurrence: None)
  Receive Date: 20080206
  Receipt Date: 20070206
  Transmission Date: 20080703
  Serious: Yes (Hospitalization)
  Sender: FDA-Public Use
  Company Number: A0638584A

PATIENT
  Sex: Female

DRUGS (2)
  1. FONDAPARINUX SODIUM [Suspect]
     Route: 058
  2. UNKNOWN [Concomitant]

REACTIONS (1)
  - THROMBOCYTOPENIA [None]
